FAERS Safety Report 8238008-0 (Version None)
Quarter: 2012Q1

REPORT INFORMATION
  Report Type: 
  Country: None (occurrence: None)
  Receive Date: 20120327
  Receipt Date: 20120322
  Transmission Date: 20120608
  Serious: Yes (Death, Hospitalization)
  Sender: FDA-Public Use
  Company Number: US-GLAXOSMITHKLINE-A0928185A

PATIENT
  Age: 81 Year
  Sex: Female

DRUGS (1)
  1. AVANDIA [Suspect]
     Indication: DIABETES MELLITUS
     Dosage: 8MG PER DAY
     Route: 048
     Dates: start: 19990101, end: 20091209

REACTIONS (11)
  - ANAEMIA [None]
  - LIVER INJURY [None]
  - RASH [None]
  - HYPOGLYCAEMIA [None]
  - DEATH [None]
  - MYOCARDIAL INFARCTION [None]
  - DECREASED APPETITE [None]
  - BLINDNESS [None]
  - ASTHENIA [None]
  - UPPER RESPIRATORY TRACT INFECTION [None]
  - NAUSEA [None]
